FAERS Safety Report 19328034 (Version 1)
Quarter: 2021Q2

REPORT INFORMATION
  Report Type: Report from Study
  Country: JP (occurrence: JP)
  Receive Date: 20210528
  Receipt Date: 20210528
  Transmission Date: 20210717
  Serious: Yes (Life-Threatening, Other)
  Sender: FDA-Public Use
  Company Number: JP-BAUSCH-BL-2018-027704

PATIENT
  Age: 50 Year
  Sex: Male
  Weight: 100 kg

DRUGS (8)
  1. TALTZ [Suspect]
     Active Substance: IXEKIZUMAB
     Indication: PSORIASIS
     Dosage: 1 YEAR 4 MONTHS 4 DAYS
     Route: 065
     Dates: start: 20190926, end: 20210129
  2. LUMICEF [Suspect]
     Active Substance: BRODALUMAB
     Route: 058
     Dates: start: 20171110, end: 20171222
  3. LUMICEF [Suspect]
     Active Substance: BRODALUMAB
     Route: 058
     Dates: start: 20180112, end: 20180406
  4. TREMFYA [Suspect]
     Active Substance: GUSELKUMAB
     Indication: PSORIASIS
     Route: 065
     Dates: start: 20180706, end: 20190819
  5. DAIVOBET [Concomitant]
     Active Substance: BETAMETHASONE DIPROPIONATE\CALCIPOTRIENE
     Indication: PRODUCT USED FOR UNKNOWN INDICATION
     Dosage: CREAM
     Dates: end: 20180406
  6. LUMICEF [Suspect]
     Active Substance: BRODALUMAB
     Indication: PSORIASIS
     Route: 058
     Dates: start: 20170714, end: 20170726
  7. LUMICEF [Suspect]
     Active Substance: BRODALUMAB
     Route: 058
     Dates: start: 20170809, end: 20171020
  8. HUMIRA [Suspect]
     Active Substance: ADALIMUMAB
     Indication: PSORIASIS
     Route: 058
     Dates: start: 20180502, end: 20180622

REACTIONS (2)
  - Cholangiocarcinoma [Not Recovered/Not Resolved]
  - Rash [Not Recovered/Not Resolved]

NARRATIVE: CASE EVENT DATE: 20171124
